FAERS Safety Report 4646186-5 (Version None)
Quarter: 2005Q2

REPORT INFORMATION
  Report Type: 
  Country: None (occurrence: None)
  Receive Date: 20050427
  Receipt Date: 20040809
  Transmission Date: 20051028
  Serious: Yes (Hospitalization, Other)
  Sender: FDA-Public Use
  Company Number: PHEH2004US08567

PATIENT
  Age: 43 Year
  Sex: Male

DRUGS (4)
  1. NEORAL [Suspect]
     Indication: RENAL TRANSPLANT
     Dosage: 125 MG, BID
     Route: 048
     Dates: start: 19960401, end: 20040601
  2. METOPROLOL TARTRATE [Concomitant]
     Indication: HYPERTENSION
     Dosage: 100 MG, UNK
  3. VERAPAMIL [Concomitant]
     Indication: HYPERTENSION
  4. PREDNISONE [Concomitant]

REACTIONS (6)
  - ASTHENIA [None]
  - GRAFT LOSS [None]
  - KIDNEY TRANSPLANT REJECTION [None]
  - NAUSEA [None]
  - THROMBOSIS [None]
  - VOMITING [None]
